FAERS Safety Report 9655851 (Version 1)
Quarter: 2013Q4

REPORT INFORMATION
  Report Type: Spontaneous
  Country: CA (occurrence: CA)
  Receive Date: 20131030
  Receipt Date: 20131030
  Transmission Date: 20140711
  Serious: Yes (Hospitalization, Other)
  Sender: FDA-Public Use
  Company Number: CA-ASTRAZENECA-2013SE78774

PATIENT
  Age: 27 Year
  Sex: Female
  Weight: 102 kg

DRUGS (1)
  1. SYMBICORT TURBUHALER [Suspect]
     Dosage: 100, 1 DOSAGE FORM, 2 EVERY DAY
     Route: 055

REACTIONS (2)
  - Concomitant disease aggravated [Unknown]
  - Grand mal convulsion [Unknown]
